FAERS Safety Report 18818301 (Version 1)
Quarter: 2021Q1

REPORT INFORMATION
  Report Type: Report from Study
  Country: IN (occurrence: IN)
  Receive Date: 20210201
  Receipt Date: 20210201
  Transmission Date: 20210419
  Serious: Yes (Death, Other)
  Sender: FDA-Public Use
  Company Number: NVSC2021IN022139

PATIENT
  Age: 59 Year
  Sex: Male

DRUGS (1)
  1. VOTRIENT [Suspect]
     Active Substance: PAZOPANIB HYDROCHLORIDE
     Indication: RENAL CELL CARCINOMA
     Dosage: 800 MG, QD
     Route: 048
     Dates: start: 20200525, end: 202101

REACTIONS (4)
  - Loss of consciousness [Unknown]
  - Hypophagia [Unknown]
  - Decubitus ulcer [Unknown]
  - Dyspnoea [Fatal]

NARRATIVE: CASE EVENT DATE: 202007
